FAERS Safety Report 6367688-X (Version None)
Quarter: 2009Q3

REPORT INFORMATION
  Report Type: 
  Country: None (occurrence: None)
  Receive Date: 20090916
  Receipt Date: 20090908
  Transmission Date: 20100115
  Serious: Yes (Life-Threatening)
  Sender: FDA-Public Use
  Company Number: CIO09016549

PATIENT
  Age: 60 Year
  Sex: Female

DRUGS (2)
  1. SINEX 12-HOUR NASAL SPRAY OR MIST(CAMPHOR 0.034 MG, EUCALYPTUS OIL 0.0 [Suspect]
     Indication: SINUS CONGESTION
     Dosage: 2 SPRAY, 1/DAY, INTRANASAL
     Route: 045
     Dates: start: 20090901, end: 20090907
  2. CLONIDINE [Concomitant]

REACTIONS (10)
  - BRONCHOSPASM [None]
  - DRUG INEFFECTIVE [None]
  - DYSPNOEA [None]
  - EYE IRRITATION [None]
  - EYE PAIN [None]
  - EYE PRURITUS [None]
  - NASAL DISCOMFORT [None]
  - OROPHARYNGEAL PAIN [None]
  - THROAT IRRITATION [None]
  - THROAT TIGHTNESS [None]
